FAERS Safety Report 5314670-7 (Version None)
Quarter: 2007Q2

REPORT INFORMATION
  Report Type: 
  Country: None (occurrence: None)
  Receive Date: 20070502
  Receipt Date: 20070501
  Transmission Date: 20071010
  Serious: Yes (Death)
  Sender: FDA-Public Use
  Company Number: US-BRISTOL-MYERS SQUIBB COMPANY-13759139

PATIENT
  Age: 56 Year
  Sex: Female

DRUGS (6)
  1. GLUCOPHAGE [Suspect]
     Indication: DIABETES MELLITUS
     Route: 048
     Dates: start: 20050101
  2. GLIPIZIDE [Suspect]
     Indication: DIABETES MELLITUS
     Route: 048
     Dates: start: 20050101
  3. CRESTOR [Concomitant]
  4. TOPROL-XL [Concomitant]
     Route: 048
  5. SYNTHROID [Concomitant]
     Route: 048
  6. MAVIK [Concomitant]
     Route: 048

REACTIONS (1)
  - DEATH [None]
